FAERS Safety Report 5895098-8 (Version None)
Quarter: 2008Q3

REPORT INFORMATION
  Report Type: 
  Country: None (occurrence: None)
  Receive Date: 20080924
  Receipt Date: 20080911
  Transmission Date: 20090109
  Serious: No
  Sender: FDA-Public Use
  Company Number: US-PFIZER INC-2008071477

PATIENT
  Sex: Male
  Weight: 64 kg

DRUGS (3)
  1. DETROL LA [Suspect]
     Indication: NOCTURIA
     Dates: start: 20080801, end: 20080101
  2. OMEPRAZOLE [Interacting]
     Indication: GASTROOESOPHAGEAL REFLUX DISEASE
     Dosage: DAILY DOSE:20MG
  3. VITAMIN TAB [Concomitant]

REACTIONS (3)
  - DRUG INEFFECTIVE [None]
  - DRUG INTERACTION [None]
  - UNEVALUABLE EVENT [None]
